FAERS Safety Report 24393979 (Version 2)
Quarter: 2024Q4

REPORT INFORMATION
  Report Type: Spontaneous
  Country: JP (occurrence: JP)
  Receive Date: 20241003
  Receipt Date: 20241014
  Transmission Date: 20250115
  Serious: Yes (Other)
  Sender: NOVARTIS
  Company Number: JP-002147023-NVSJ2024JP010652

PATIENT
  Age: 47 Year
  Sex: Male

DRUGS (1)
  1. MAYZENT [Suspect]
     Active Substance: SIPONIMOD
     Indication: Secondary progressive multiple sclerosis
     Dosage: 2 MG
     Route: 048
     Dates: start: 20230826, end: 20240823

REACTIONS (5)
  - Meningitis cryptococcal [Unknown]
  - Headache [Unknown]
  - Pyrexia [Unknown]
  - Memory impairment [Unknown]
  - Decreased appetite [Unknown]

NARRATIVE: CASE EVENT DATE: 20240701
